FAERS Safety Report 25072646 (Version 1)
Quarter: 2025Q1

REPORT INFORMATION
  Report Type: Spontaneous
  Country: FR (occurrence: FR)
  Receive Date: 20250313
  Receipt Date: 20250313
  Transmission Date: 20250408
  Serious: Yes (Hospitalization, Other)
  Sender: ESKAYEF PHARMACEUTICALS LIMITED
  Company Number: FR-SKF-000156

PATIENT
  Age: 35 Year
  Sex: Male

DRUGS (2)
  1. PREGABALIN [Suspect]
     Active Substance: PREGABALIN
     Indication: Product used for unknown indication
     Route: 065
  2. PREGABALIN [Suspect]
     Active Substance: PREGABALIN
     Indication: Product used for unknown indication
     Route: 065

REACTIONS (5)
  - Hallucination [Unknown]
  - Withdrawal syndrome [Unknown]
  - Confusional state [Unknown]
  - Drug use disorder [Unknown]
  - Drug dependence [Recovered/Resolved]
